FAERS Safety Report 10015764 (Version 1)
Quarter: 2014Q1

REPORT INFORMATION
  Report Type: Spontaneous
  Country: IT (occurrence: IT)
  Receive Date: 20140317
  Receipt Date: 20140317
  Transmission Date: 20141002
  Serious: Yes (Hospitalization, Other)
  Sender: FDA-Public Use
  Company Number: IT-PERRIGO-14IT002427

PATIENT
  Age: 20 Year
  Sex: Male

DRUGS (9)
  1. LOPERAMIDE HYDROCHLORIDE 2 MG 224 [Suspect]
     Indication: ABDOMINAL PAIN
     Dosage: 2 MG, 3 TIMES OVER 6 HOURS
     Route: 048
  2. LOPERAMIDE HYDROCHLORIDE 2 MG 224 [Suspect]
     Indication: DIARRHOEA
     Dosage: 2 MG, 3 TIMES OVER 6 HOURS
     Route: 048
  3. LOPERAMIDE HYDROCHLORIDE 2 MG 224 [Suspect]
     Dosage: 2 MG, 6 TIMES OVER NIGHT
     Route: 048
  4. OLANZAPINE [Suspect]
     Indication: STUPOR
     Dosage: 10 MG, QD
     Route: 048
  5. OLANZAPINE [Suspect]
     Indication: MUTISM
  6. OLANZAPINE [Suspect]
     Indication: HYPOKINESIA
  7. OLANZAPINE [Suspect]
     Indication: NEGATIVISM
  8. OLANZAPINE [Suspect]
     Indication: CONSTIPATION
  9. OLANZAPINE [Suspect]
     Indication: DYSURIA

REACTIONS (19)
  - Overdose [Recovered/Resolved]
  - Catatonia [Recovered/Resolved]
  - Delirium [Recovered/Resolved]
  - Confusional state [Recovered/Resolved]
  - Urinary retention [Recovered/Resolved]
  - Hyperhidrosis [Recovered/Resolved]
  - Hypertonia [Recovered/Resolved]
  - Waxy flexibility [Recovered/Resolved]
  - Psychomotor retardation [Recovered/Resolved]
  - Stupor [Recovered/Resolved]
  - Immobile [Recovered/Resolved]
  - Fatigue [Recovered/Resolved]
  - Mutism [Recovered/Resolved]
  - Decreased appetite [Recovered/Resolved]
  - Impaired self-care [Recovered/Resolved]
  - Feeling abnormal [Recovered/Resolved]
  - Constipation [Recovered/Resolved]
  - Negativism [Recovered/Resolved]
  - Somnolence [Recovered/Resolved]
